FAERS Safety Report 6054308-7 (Version None)
Quarter: 2009Q1

REPORT INFORMATION
  Report Type: 
  Country: None (occurrence: None)
  Receive Date: 20090127
  Receipt Date: 20090116
  Transmission Date: 20090719
  Serious: Yes (Other)
  Sender: FDA-Public Use
  Company Number: PHHY2008AU30300

PATIENT
  Age: 68 Year
  Sex: Female

DRUGS (2)
  1. EXJADE [Suspect]
     Indication: IRON OVERLOAD
     Dosage: 1.5 G DAILY
     Dates: start: 20080101, end: 20081003
  2. HYDROXYUREA [Concomitant]
     Indication: MYELOFIBROSIS
     Dosage: 500 MG DAILY

REACTIONS (4)
  - BLOOD CREATININE INCREASED [None]
  - HYPERKALAEMIA [None]
  - RENAL FAILURE ACUTE [None]
  - SPLENOMEGALY [None]
